FAERS Safety Report 7863581-1 (Version None)
Quarter: 2011Q4

REPORT INFORMATION
  Report Type: 
  Country: None (occurrence: None)
  Receive Date: 20111027
  Receipt Date: 20101207
  Transmission Date: 20120403
  Serious: No
  Sender: FDA-Public Use
  Company Number: US-AMGEN-KDL380815

PATIENT
  Age: 55 Year
  Sex: Male

DRUGS (4)
  1. ENBREL [Suspect]
  2. ENBREL [Suspect]
     Indication: PSORIATIC ARTHROPATHY
     Dates: start: 19991101
  3. ENBREL [Suspect]
     Indication: PSORIASIS
     Dosage: 50 MG, QWK
     Route: 058
     Dates: start: 19990101
  4. METHOTREXATE [Concomitant]
     Dosage: 12.5 MG, QWK
     Route: 048

REACTIONS (8)
  - RHINORRHOEA [None]
  - NASOPHARYNGITIS [None]
  - EAR DISCOMFORT [None]
  - COUGH [None]
  - EYE PRURITUS [None]
  - PSORIASIS [None]
  - NASAL CONGESTION [None]
  - ARTHRALGIA [None]
